FAERS Safety Report 8237106-5 (Version None)
Quarter: 2012Q1

REPORT INFORMATION
  Report Type: 
  Country: None (occurrence: None)
  Receive Date: 20120327
  Receipt Date: 20120322
  Transmission Date: 20120608
  Serious: No
  Sender: FDA-Public Use
  Company Number: US-B.I. PHARMACEUTICALS,INC./RIDGEFIELD-2012-BP-05539BP

PATIENT

DRUGS (4)
  1. TRADJENTA [Suspect]
  2. ACTOS [Concomitant]
  3. JANUVIA [Concomitant]
  4. METFORMIN HCL [Concomitant]

REACTIONS (1)
  - ABDOMINAL DISCOMFORT [None]
